FAERS Safety Report 24603390 (Version 1)
Quarter: 2024Q4

REPORT INFORMATION
  Report Type: Spontaneous
  Country: US (occurrence: None)
  Receive Date: 20241111
  Receipt Date: 20241111
  Transmission Date: 20250115
  Serious: Yes (Other)
  Sender: Public
  Company Number: None

PATIENT
  Sex: Female

DRUGS (1)
  1. TERIFLUNOMIDE [Suspect]
     Active Substance: TERIFLUNOMIDE
     Dosage: FREQ: TAKE 1 TABLET BY MOUTH EVERY MORNING BEFORE BREAKFAST.

REACTIONS (2)
  - Surgery [None]
  - Therapy interrupted [None]
